FAERS Safety Report 5069505-7 (Version None)
Quarter: 2006Q3

REPORT INFORMATION
  Report Type: 
  Country: None (occurrence: None)
  Receive Date: 20060801
  Receipt Date: 20060801
  Transmission Date: 20061208
  Serious: Yes (Hospitalization)
  Sender: FDA-Public Use
  Company Number: None

PATIENT
  Age: 41 Year
  Sex: Male
  Weight: 84.9 kg

DRUGS (1)
  1. LOVENOX [Suspect]
     Indication: THROMBOSIS PROPHYLAXIS
     Dosage: 40 MG DAILY SQ
     Route: 058
     Dates: start: 20060413, end: 20060414

REACTIONS (14)
  - ABDOMINAL PAIN [None]
  - ALCOHOL WITHDRAWAL SYNDROME [None]
  - ANTIBODY TEST POSITIVE [None]
  - BLOOD ALCOHOL INCREASED [None]
  - DIABETIC KETOACIDOSIS [None]
  - ELECTROLYTE IMBALANCE [None]
  - GASTRIC VARICES [None]
  - HEPARIN-INDUCED THROMBOCYTOPENIA TEST [None]
  - HEPATIC FAILURE [None]
  - LIVER FUNCTION TEST ABNORMAL [None]
  - PORTAL HYPERTENSION [None]
  - RENAL FAILURE ACUTE [None]
  - SUICIDAL IDEATION [None]
  - THROMBOCYTOPENIA [None]
